FAERS Safety Report 23988332 (Version 2)
Quarter: 2024Q3

REPORT INFORMATION
  Report Type: Report from Study
  Country: US (occurrence: US)
  Receive Date: 20240619
  Receipt Date: 20240712
  Transmission Date: 20241016
  Serious: Yes (Hospitalization, Other)
  Sender: ABBVIE
  Company Number: US-ABBVIE-5800339

PATIENT
  Sex: Male
  Weight: 140.61 kg

DRUGS (12)
  1. HUMIRA [Suspect]
     Active Substance: ADALIMUMAB
     Indication: Ankylosing spondylitis
     Dosage: THERAPY END DATE: 2024
     Route: 058
     Dates: start: 202406
  2. HUMIRA [Suspect]
     Active Substance: ADALIMUMAB
     Route: 058
     Dates: start: 2021, end: 202208
  3. HUMIRA [Suspect]
     Active Substance: ADALIMUMAB
     Route: 058
     Dates: start: 202211, end: 202308
  4. HUMIRA [Suspect]
     Active Substance: ADALIMUMAB
     Route: 058
     Dates: start: 202310, end: 202401
  5. HYDROCHLOROTHIAZIDE [Concomitant]
     Active Substance: HYDROCHLOROTHIAZIDE
     Indication: Hypertension
  6. TRAZODONE [Concomitant]
     Active Substance: TRAZODONE HYDROCHLORIDE
     Indication: Depression
  7. LOSARTAN POTASSIUM [Concomitant]
     Active Substance: LOSARTAN POTASSIUM
     Indication: Hypertension
  8. VITAMIN B12 [Concomitant]
     Active Substance: CYANOCOBALAMIN
     Indication: Vitamin supplementation
  9. METFORMIN [Concomitant]
     Active Substance: METFORMIN HYDROCHLORIDE
     Indication: Diabetes mellitus
  10. ESCITALOPRAM [Concomitant]
     Active Substance: ESCITALOPRAM OXALATE
     Indication: Product used for unknown indication
  11. BAYER LOW DOSE [Concomitant]
     Active Substance: ASPIRIN
     Indication: Anticoagulant therapy
  12. DESMOPRESSIN [Concomitant]
     Active Substance: DESMOPRESSIN
     Indication: Urine output increased

REACTIONS (12)
  - Spinal cord compression [Recovered/Resolved]
  - Fall [Recovered/Resolved]
  - Balance disorder [Recovering/Resolving]
  - Arthritis [Not Recovered/Not Resolved]
  - Ankylosing spondylitis [Recovered/Resolved]
  - Osteoarthritis [Recovered/Resolved]
  - Back pain [Unknown]
  - Back injury [Recovered/Resolved]
  - Neck pain [Unknown]
  - Joint injury [Not Recovered/Not Resolved]
  - Neck injury [Recovered/Resolved]
  - Coordination abnormal [Recovered/Resolved]

NARRATIVE: CASE EVENT DATE: 20210101
